FAERS Safety Report 11300622 (Version 1)
Quarter: 2015Q3

REPORT INFORMATION
  Report Type: Spontaneous
  Country: US (occurrence: None)
  Receive Date: 20150723
  Receipt Date: 20150723
  Transmission Date: 20151125
  Serious: Yes (Hospitalization)
  Sender: FDA-Public Use
  Company Number: None

PATIENT
  Age: 76 Year
  Sex: Male
  Weight: 123 kg

DRUGS (3)
  1. TAXOL [Suspect]
     Active Substance: PACLITAXEL
     Dosage: 100MG/M2  EVERY MONDAY OF AD  INTRAVENOUS
     Route: 042
  2. 5FU [Suspect]
     Active Substance: FLUOROURACIL
     Route: 042
  3. HYDREA [Concomitant]
     Active Substance: HYDROXYUREA

REACTIONS (4)
  - Hypotension [None]
  - Sepsis [None]
  - Hyperkalaemia [None]
  - Pyrexia [None]

NARRATIVE: CASE EVENT DATE: 20150719
